FAERS Safety Report 10145006 (Version 2)
Quarter: 2014Q2

REPORT INFORMATION
  Report Type: Spontaneous
  Country: DE (occurrence: DE)
  Receive Date: 20140501
  Receipt Date: 20140528
  Transmission Date: 20141212
  Serious: Yes (Hospitalization, Other)
  Sender: FDA-Public Use
  Company Number: GXKR2014DE001718

PATIENT
  Sex: Male
  Weight: 70 kg

DRUGS (5)
  1. LOVASTATIN [Suspect]
     Dosage: 20 MG, QD
     Route: 048
  2. METFORMIN [Concomitant]
     Dosage: 500 MG, BID
     Route: 048
  3. LISINOPRIL [Concomitant]
     Dosage: 15 MG, UNK
     Route: 048
  4. AMLODIPINE [Concomitant]
     Dosage: 10 MG, QD
     Route: 048
  5. TOREM [Concomitant]

REACTIONS (7)
  - Polyneuropathy [Unknown]
  - Gait disturbance [Not Recovered/Not Resolved]
  - Myopathy [Unknown]
  - Muscular weakness [Not Recovered/Not Resolved]
  - Myalgia [Not Recovered/Not Resolved]
  - Muscle spasms [Unknown]
  - Blood creatine phosphokinase increased [Unknown]
